FAERS Safety Report 7421983-1 (Version None)
Quarter: 2011Q2

REPORT INFORMATION
  Report Type: 
  Country: None (occurrence: None)
  Receive Date: 20110418
  Receipt Date: 20110405
  Transmission Date: 20111010
  Serious: Yes (Hospitalization, Other)
  Sender: FDA-Public Use
  Company Number: US-ELI_LILLY_AND_COMPANY-US201102007060

PATIENT
  Sex: Female
  Weight: 75.283 kg

DRUGS (17)
  1. PREDNISONE [Concomitant]
     Indication: RHEUMATOID ARTHRITIS
     Dosage: UNK, UNKNOWN
     Route: 065
  2. COQ10 [Concomitant]
     Dosage: UNK, UNKNOWN
     Route: 065
  3. BENEFIBER [Concomitant]
     Dosage: UNK, UNKNOWN
     Route: 065
  4. ASPIRIN [Concomitant]
     Dosage: UNK, UNKNOWN
     Route: 065
  5. CALCIUM [Concomitant]
     Dosage: UNK, UNKNOWN
     Route: 065
  6. NEXIUM [Concomitant]
     Dosage: UNK, UNKNOWN
     Route: 065
  7. FORTEO [Suspect]
     Indication: OSTEOPOROSIS
     Dosage: 20 UG, DAILY (1/D)
     Route: 058
     Dates: start: 20110120
  8. CYMBALTA [Concomitant]
     Dosage: UNK, UNKNOWN
     Route: 065
  9. VITAMIN D [Concomitant]
     Dosage: UNK, UNKNOWN
     Route: 065
  10. LOTREL [Concomitant]
     Dosage: UNK, UNKNOWN
     Route: 065
  11. VESICARE [Concomitant]
  12. NIACIN [Concomitant]
     Dosage: UNK, UNKNOWN
     Route: 065
  13. LEUCOVORIN [Concomitant]
     Dosage: UNK, UNKNOWN
     Route: 065
  14. SIMVASTATIN [Concomitant]
     Dosage: UNK, UNKNOWN
     Route: 065
  15. METHOTREXATE [Concomitant]
     Dosage: UNK, UNKNOWN
     Route: 065
  16. B 1-6-12 [Concomitant]
     Dosage: UNK, UNKNOWN
     Route: 065
  17. HUMULIN 70/30 [Concomitant]

REACTIONS (3)
  - SPINAL FRACTURE [None]
  - MOVEMENT DISORDER [None]
  - OSTEOPOROTIC FRACTURE [None]
